FAERS Safety Report 6922296-4 (Version None)
Quarter: 2010Q3

REPORT INFORMATION
  Report Type: 
  Country: None (occurrence: None)
  Receive Date: 20100813
  Receipt Date: 20100806
  Transmission Date: 20110219
  Serious: Yes (Hospitalization)
  Sender: FDA-Public Use
  Company Number: US-BIOGENIDEC-2010BI027190

PATIENT
  Sex: Female

DRUGS (2)
  1. AVONEX [Suspect]
     Indication: MULTIPLE SCLEROSIS
     Route: 030
     Dates: start: 20020308, end: 20051215
  2. AVONEX [Suspect]
     Route: 030
     Dates: start: 20060531

REACTIONS (6)
  - ASTHMA [None]
  - COUGH [None]
  - DIABETES MELLITUS [None]
  - FALL [None]
  - GAIT DISTURBANCE [None]
  - MYOCARDIAL INFARCTION [None]
